FAERS Safety Report 10960375 (Version 2)
Quarter: 2015Q2

REPORT INFORMATION
  Report Type: Report from Study
  Country: CA (occurrence: None)
  Receive Date: 20150325
  Receipt Date: 20150602
  Transmission Date: 20150821
  Serious: Yes (Hospitalization)
  Sender: FDA-Public Use
  Company Number: 2015AP007410

PATIENT
  Age: 18 Year
  Sex: Male
  Weight: 51 kg

DRUGS (2)
  1. DEFERIPRONE (DEFERIPRONE) TABLET [Suspect]
     Active Substance: DEFERIPRONE
     Indication: IRON OVERLOAD
     Route: 048
     Dates: start: 20140606, end: 20140812
  2. DEFERIPRONE (DEFERIPRONE) TABLET [Suspect]
     Active Substance: DEFERIPRONE
     Indication: THALASSAEMIA BETA
     Route: 048
     Dates: start: 20140606, end: 20140812

REACTIONS (4)
  - Abdominal pain upper [None]
  - Transaminases increased [None]
  - Vomiting [None]
  - Nausea [None]

NARRATIVE: CASE EVENT DATE: 20141223
